FAERS Safety Report 13263663 (Version 13)
Quarter: 2018Q2

REPORT INFORMATION
  Report Type: Spontaneous
  Country: US (occurrence: US)
  Receive Date: 20170223
  Receipt Date: 20180529
  Transmission Date: 20180711
  Serious: No
  Sender: FDA-Public Use
  Company Number: US-009507513-1702USA004870

PATIENT
  Age: 24 Year
  Sex: Female
  Weight: 74.38 kg

DRUGS (2)
  1. IMPLANON [Suspect]
     Active Substance: ETONOGESTREL
     Indication: CONTRACEPTION
     Dosage: STRENGTH: 68 (UNITS NOT PROVIDED); 1 IMPLANT, UNK
     Route: 059
     Dates: start: 20111126
  2. IMPLANON [Suspect]
     Active Substance: ETONOGESTREL
     Dosage: STRENGTH: 68 (UNITS NOT PROVIDED); 2 IMPLANTS, UNK
     Route: 059
     Dates: start: 20111117, end: 20111125

REACTIONS (6)
  - Device deployment issue [Not Recovered/Not Resolved]
  - Complication of device insertion [Not Recovered/Not Resolved]
  - Complication associated with device [Not Recovered/Not Resolved]
  - Complication of device removal [Not Recovered/Not Resolved]
  - Complication associated with device [Recovered/Resolved]
  - Drug dose omission [Unknown]

NARRATIVE: CASE EVENT DATE: 20111117
